FAERS Safety Report 9385674 (Version 2)
Quarter: 2014Q2

REPORT INFORMATION
  Report Type: Report from Study
  Country: PL (occurrence: PL)
  Receive Date: 20130705
  Receipt Date: 20140407
  Transmission Date: 20141212
  Serious: Yes (Hospitalization)
  Sender: FDA-Public Use
  Company Number: PL-GLAXOSMITHKLINE-Z0013288C

PATIENT
  Age: 60 Year
  Sex: Female
  Weight: 52 kg

DRUGS (4)
  1. TRAMETINIB [Suspect]
     Indication: MALIGNANT MELANOMA
     Dosage: 2MG PER DAY
     Route: 048
     Dates: start: 20110603
  2. PACLITAXEL [Suspect]
     Indication: MALIGNANT MELANOMA
     Dosage: 175MGM2 SINGLE DOSE
     Route: 042
     Dates: start: 20110421
  3. APAP [Concomitant]
     Route: 065
     Dates: start: 20130626, end: 201307
  4. VITAMINUM C [Concomitant]
     Route: 065
     Dates: start: 20130626, end: 201307

REACTIONS (1)
  - Anaemia [Recovered/Resolved]
